FAERS Safety Report 9397175 (Version 1)
Quarter: 2013Q3

REPORT INFORMATION
  Report Type: Spontaneous
  Country: US (occurrence: None)
  Receive Date: 20130710
  Receipt Date: 20130710
  Transmission Date: 20140515
  Serious: Yes (Disabling)
  Sender: FDA-Public Use
  Company Number: None

PATIENT
  Age: 74 Year
  Sex: Male
  Weight: 104.33 kg

DRUGS (7)
  1. LOVASTATIN [Suspect]
     Dosage: CUT ONE 40 MG PILL IN HALF ONCE A DAY TAKEN BY MOUTH
     Route: 048
     Dates: start: 2011
  2. LISINOPRIL [Concomitant]
  3. AMLODPINE BESYLATE [Concomitant]
  4. ALLOPURINOL [Concomitant]
  5. FISH OIL OMEGA 3 [Concomitant]
  6. CALCIUM [Concomitant]
  7. VITAMIN FOR OLDER PEOPLE [Concomitant]

REACTIONS (4)
  - Type 1 diabetes mellitus [None]
  - Drug intolerance [None]
  - Myalgia [None]
  - Liver disorder [None]
